FAERS Safety Report 18912154 (Version 2)
Quarter: 2021Q3

REPORT INFORMATION
  Report Type: Spontaneous
  Country: CA (occurrence: CA)
  Receive Date: 20210219
  Receipt Date: 20210830
  Transmission Date: 20211014
  Serious: Yes (Hospitalization, Other)
  Sender: FDA-Public Use
  Company Number: CA-AUROBINDO-AUR-APL-2021-006677

PATIENT
  Age: 41 Year
  Sex: Male

DRUGS (3)
  1. STELARA [Concomitant]
     Active Substance: USTEKINUMAB
     Indication: PRODUCT USED FOR UNKNOWN INDICATION
     Dosage: UNK
     Route: 065
  2. METRONIDAZOLE. [Suspect]
     Active Substance: METRONIDAZOLE
     Indication: ANAL ULCER
     Dosage: UNK
     Route: 065
  3. CIPROFLOXACIN. [Concomitant]
     Active Substance: CIPROFLOXACIN
     Indication: ANAL ULCER
     Dosage: UNK
     Route: 065

REACTIONS (9)
  - Toxic encephalopathy [Recovered/Resolved]
  - Dysphonia [Recovered/Resolved]
  - Peripheral sensory neuropathy [Recovered/Resolved]
  - Parkinsonism [Recovered/Resolved]
  - Bradykinesia [Recovered/Resolved]
  - Dysdiadochokinesis [Recovered/Resolved]
  - Ataxia [Recovered/Resolved]
  - Toxicity to various agents [Recovered/Resolved]
  - Intentional product use issue [Recovered/Resolved]
